FAERS Safety Report 7552256-4 (Version None)
Quarter: 2011Q2

REPORT INFORMATION
  Report Type: 
  Country: None (occurrence: None)
  Receive Date: 20110616
  Receipt Date: 20030717
  Transmission Date: 20111010
  Serious: Yes (Hospitalization)
  Sender: FDA-Public Use
  Company Number: PHHO2003US09311

PATIENT
  Sex: Male

DRUGS (3)
  1. SAMARIUM [153 SM] LEXIDRONAM PENTASODIUM [Concomitant]
     Indication: PROSTATE CANCER
     Dosage: 0.5 MCI/KG, UNK
     Route: 042
     Dates: start: 20030130
  2. ZOMETA [Suspect]
     Indication: PROSTATE CANCER
     Dosage: 4 MG, QMO
     Route: 042
     Dates: start: 20030131
  3. MEGACE [Suspect]
     Indication: APPETITE DISORDER
     Dosage: 800 MG, QD
     Dates: start: 20030716

REACTIONS (1)
  - PAIN [None]
